FAERS Safety Report 5541598-X (Version None)
Quarter: 2007Q4

REPORT INFORMATION
  Report Type: 
  Country: None (occurrence: None)
  Receive Date: 20071210
  Receipt Date: 20071204
  Transmission Date: 20080405
  Serious: Yes (Hospitalization)
  Sender: FDA-Public Use
  Company Number: IT-AVENTIS-200721105GDDC

PATIENT
  Age: 88 Year
  Sex: Female

DRUGS (5)
  1. BI-EUGLUCON M [Suspect]
     Route: 048
     Dates: start: 20050101, end: 20070914
  2. ASPIRIN [Concomitant]
     Dates: start: 20070827, end: 20070914
  3. LUVION                             /00252501/ [Concomitant]
     Dates: start: 20070827, end: 20070914
  4. ENAPREN [Concomitant]
     Dates: start: 20070827, end: 20070914
  5. LASIX [Concomitant]
     Dates: start: 20050101, end: 20070914

REACTIONS (2)
  - FALL [None]
  - HYPOGLYCAEMIA [None]
